FAERS Safety Report 8310339-5 (Version None)
Quarter: 2012Q2

REPORT INFORMATION
  Report Type: 
  Country: None (occurrence: None)
  Receive Date: 20120425
  Receipt Date: 20120424
  Transmission Date: 20120825
  Serious: Yes (Death)
  Sender: FDA-Public Use
  Company Number: PHEH2012US008689

PATIENT
  Sex: Female

DRUGS (12)
  1. ALPHAGAN [Concomitant]
     Dosage: 0.1 %,
  2. MECLIZINE [Concomitant]
     Dosage: 12.5 MG,
  3. TIMOLOL MALEATE [Concomitant]
     Dosage: 5 MG,
  4. TASIGNA [Suspect]
     Dosage: 400 MG, BID
     Route: 048
  5. ALLOPURINOL [Concomitant]
     Dosage: 100 MG,
  6. GABAPENTIN [Concomitant]
     Dosage: 100 MG,
  7. HYDROXYUREA [Concomitant]
     Dosage: 500 MG,
  8. LEXAPRO [Concomitant]
     Dosage: 500 MG,
  9. XANAX [Concomitant]
     Dosage: 0.25 MG,
  10. XALATAN [Concomitant]
     Dosage: 0.005 %,
  11. ZOFRAN [Concomitant]
     Dosage: 4 MG,
  12. PRILOSEC [Concomitant]
     Dosage: 10 MG,

REACTIONS (1)
  - DEATH [None]
